FAERS Safety Report 14780159 (Version 2)
Quarter: 2018Q2

REPORT INFORMATION
  Report Type: Spontaneous
  Country: DE (occurrence: DE)
  Receive Date: 20180419
  Receipt Date: 20180608
  Transmission Date: 20180711
  Serious: Yes (Other)
  Sender: FDA-Public Use
  Company Number: DE-PFIZER INC-2018066377

PATIENT
  Age: 5 Year
  Weight: 20 kg

DRUGS (4)
  1. HCT [Concomitant]
     Active Substance: HYDROCHLOROTHIAZIDE
     Indication: CARDIAC FAILURE CHRONIC
     Dosage: 8 MG, DAILY (SUSPENSION)
     Dates: start: 2013, end: 2018
  2. DIAZOXID [Concomitant]
     Indication: HYPERINSULINAEMIC HYPOGLYCAEMIA
     Dosage: 110 MG, DAILY
     Dates: start: 2013, end: 2018
  3. RAPAMUNE [Suspect]
     Active Substance: SIROLIMUS
     Indication: HYPERINSULINAEMIC HYPOGLYCAEMIA
     Dosage: 1.8 ML, 2X/DAY
     Route: 048
     Dates: start: 2016
  4. LANREOTIDE [Concomitant]
     Active Substance: LANREOTIDE
     Indication: HYPERINSULINAEMIC HYPOGLYCAEMIA
     Dosage: 120 MG, DAILY
     Dates: start: 2014, end: 2018

REACTIONS (4)
  - Product use issue [Unknown]
  - Oral disorder [Not Recovered/Not Resolved]
  - Product use in unapproved indication [Unknown]
  - Photosensitivity reaction [Not Recovered/Not Resolved]

NARRATIVE: CASE EVENT DATE: 2016
